FAERS Safety Report 9619599 (Version 1)
Quarter: 2013Q4

REPORT INFORMATION
  Report Type: Spontaneous
  Country: US (occurrence: US)
  Receive Date: 20131014
  Receipt Date: 20131014
  Transmission Date: 20140711
  Serious: Yes (Hospitalization)
  Sender: FDA-Public Use
  Company Number: US-BAYER-2013-124143

PATIENT
  Age: 26 Year
  Sex: Female

DRUGS (4)
  1. YAZ [Suspect]
  2. BEYAZ [Suspect]
  3. LORTAB [Concomitant]
     Indication: PAIN
  4. PEPCID [Concomitant]
     Dosage: 20 MG, UNK
     Route: 048

REACTIONS (2)
  - Pulmonary embolism [None]
  - Acute myocardial infarction [None]
